FAERS Safety Report 24970651 (Version 3)
Quarter: 2025Q2

REPORT INFORMATION
  Report Type: Spontaneous
  Country: GB (occurrence: GB)
  Receive Date: 20250214
  Receipt Date: 20250415
  Transmission Date: 20250717
  Serious: Yes (Hospitalization, Other)
  Sender: MYLAN
  Company Number: GB-MYLANLABS-2025M1012313

PATIENT
  Sex: Female

DRUGS (67)
  1. CLOZARIL [Suspect]
     Active Substance: CLOZAPINE
     Indication: Schizophrenia
  2. CLOZARIL [Suspect]
     Active Substance: CLOZAPINE
     Dosage: UNK, BID (100MG IN THE MORNING, 100MG AT NIGHT)
     Dates: start: 20250323
  3. CLOZAPINE [Suspect]
     Active Substance: CLOZAPINE
     Indication: Schizophrenia
     Dosage: 325 MILLIGRAM, QD (DAILY HOSPITAL ISSUE ONLY)
     Dates: start: 20110630
  4. CLOZAPINE [Suspect]
     Active Substance: CLOZAPINE
     Dosage: 2 DOSAGE FORM, BID (1 MORNING, 1 AT NIGHT, 0.1 TABLET)
     Dates: start: 20160805
  5. CLOZAPINE [Suspect]
     Active Substance: CLOZAPINE
     Indication: Schizophrenia
     Dosage: 100 MILLIGRAM, BID (0.1 TABLET)
     Dates: start: 20160805
  6. PROPRANOLOL [Concomitant]
     Active Substance: PROPRANOLOL HYDROCHLORIDE
     Dosage: 1 DOSAGE FORM, TID (1 THREE TIMES A DAY WHEN REQUIRED,84 TABLET)
     Dates: start: 20130307
  7. PROPRANOLOL [Concomitant]
     Active Substance: PROPRANOLOL HYDROCHLORIDE
     Dosage: 1 DOSAGE FORM, TID (1 THREE TIMES A DAY WHEN REQUIRED,84 TABLET)
     Dates: start: 20130111
  8. PROPRANOLOL [Concomitant]
     Active Substance: PROPRANOLOL HYDROCHLORIDE
     Dosage: 1 DOSAGE FORM, TID (1 THREE TIMES A DAY WHEN REQUIRED,84 TABLET)
     Dates: start: 20130530
  9. PROPRANOLOL [Concomitant]
     Active Substance: PROPRANOLOL HYDROCHLORIDE
     Dosage: 1 DOSAGE FORM, TID (1 THREE TIMES A DAY WHEN REQUIRED,84 TABLET)
     Dates: start: 20210902
  10. PROPRANOLOL [Concomitant]
     Active Substance: PROPRANOLOL HYDROCHLORIDE
     Dosage: 1 DOSAGE FORM, TID (1 THREE TIMES A DAY WHEN REQUIRED,84 TABLET)
     Dates: start: 20240913
  11. BETAHISTINE [Concomitant]
     Active Substance: BETAHISTINE
     Dosage: 1 DOSAGE FORM, TID (ONE TO BE TAKEN THREE TIMES A DAY,21 TABLET)
     Dates: start: 20240905
  12. BETAHISTINE [Concomitant]
     Active Substance: BETAHISTINE
     Dosage: 1 DOSAGE FORM, TID (ONE TO BE TAKEN THREE TIMES A DAY,21 TABLET)
     Dates: start: 20240626
  13. OMEPRAZOLE [Concomitant]
     Active Substance: OMEPRAZOLE
     Dosage: 1 DOSAGE FORM, QD (ONE TO BE TAKEN EACH DAY,28 CAPSULE)
     Dates: start: 20220426
  14. OMEPRAZOLE [Concomitant]
     Active Substance: OMEPRAZOLE
     Dosage: 1 DOSAGE FORM, QD (ONE TO BE TAKEN EACH DAY,28 CAPSULE)
     Dates: start: 20240626
  15. OMEPRAZOLE [Concomitant]
     Active Substance: OMEPRAZOLE
     Dosage: 1 DOSAGE FORM, QD (ONE TO BE TAKEN EACH DAY,28 CAPSULE)
     Dates: start: 20240905
  16. OMEPRAZOLE [Concomitant]
     Active Substance: OMEPRAZOLE
     Dosage: 1 DOSAGE FORM, QD (ONE TO BE TAKEN EACH DAY,28 CAPSULE)
     Dates: start: 20250330
  17. Otomize [Concomitant]
     Dosage: UNK, TID (THREE TIMES A DAY,1 SPRAY)
     Dates: start: 20110114
  18. Otomize [Concomitant]
     Dosage: UNK, TID (ONE SPRAY TO BE USED IN THE AFFECTED EAR(S) THREE TIMES A DAY)
     Dates: start: 20190417
  19. Otomize [Concomitant]
     Dosage: UNK, TID (ONE SPRAY TO BE USED IN THE AFFECTED EAR(S) THREE TIMES A DAY)
     Dates: start: 20151103
  20. Otomize [Concomitant]
     Dosage: UNK, TID (ONE SPRAY TO BE USED IN THE AFFECTED EAR(S) THREE TIMES A DAY)
     Dates: start: 20200205
  21. Otomize [Concomitant]
     Dosage: UNK, TID (ONE SPRAY TO BE USED IN THE AFFECTED EAR(S) THREE TIMES A DAY)
     Dates: start: 20200803
  22. Otomize [Concomitant]
     Dosage: UNK, TID (ONE SPRAY TO BE USED IN THE AFFECTED EAR(S) THREE TIMES A DAY)
     Dates: start: 20210802
  23. Otomize [Concomitant]
     Dosage: UNK, TID (ONE SPRAY TO BE USED IN THE AFFECTED EAR(S) THREE TIMES A DAY)
     Dates: start: 20230712
  24. NITROFURANTOIN [Concomitant]
     Active Substance: NITROFURANTOIN
     Dosage: 1 DOSAGE FORM, BID (ONE TO BE TAKEN TWICE A DAY,6 CAPSULE)
     Dates: start: 20230111
  25. ATORVASTATIN [Concomitant]
     Active Substance: ATORVASTATIN
     Dosage: 1 DOSAGE FORM, QD (ONE TO BE TAKEN EACH DAY,28 TABLET)
     Dates: start: 20221031
  26. CODEINE [Concomitant]
     Active Substance: CODEINE
  27. POLYETHYLENE GLYCOL 3350\POTASSIUM CHLORIDE\SODIUM BICARBONATE\SODIUM [Concomitant]
     Active Substance: POLYETHYLENE GLYCOL 3350\POTASSIUM CHLORIDE\SODIUM BICARBONATE\SODIUM CHLORIDE
  28. Comirnaty [Concomitant]
  29. MINERAL OIL\PARAFFIN [Concomitant]
     Active Substance: MINERAL OIL\PARAFFIN
  30. MINERAL OIL\PARAFFIN [Concomitant]
     Active Substance: MINERAL OIL\PARAFFIN
  31. VAXZEVRIA [Concomitant]
     Active Substance: AZD-1222
  32. SCOPOLAMINE HYDROBROMIDE [Concomitant]
     Active Substance: SCOPOLAMINE HYDROBROMIDE
  33. SCOPOLAMINE HYDROBROMIDE [Concomitant]
     Active Substance: SCOPOLAMINE HYDROBROMIDE
     Dosage: 2 DOSAGE FORM, BID (TWO TO BE TAKEN TWICE A DAY (IN PLACE OF OOS 300MCG),112 TABLET)
     Dates: start: 20181218
  34. SCOPOLAMINE HYDROBROMIDE [Concomitant]
     Active Substance: SCOPOLAMINE HYDROBROMIDE
  35. SCOPOLAMINE HYDROBROMIDE [Concomitant]
     Active Substance: SCOPOLAMINE HYDROBROMIDE
  36. CLOTRIMAZOLE [Concomitant]
     Active Substance: CLOTRIMAZOLE
     Dosage: 40 GRAM, TID (APPLY THREE TIMES A DAY,40 GRAM)
  37. SERTRALINE [Concomitant]
     Active Substance: SERTRALINE HYDROCHLORIDE
     Dosage: 1 DOSAGE FORM, QD (1 DAILY FOR 2 WEEKS,14 TABLET)
     Dates: start: 20121115
  38. SERTRALINE [Concomitant]
     Active Substance: SERTRALINE HYDROCHLORIDE
     Dosage: 2 DOSAGE FORM, BID (2 EVERY DAY,56 TABLET)
     Dates: start: 20180522
  39. SERTRALINE [Concomitant]
     Active Substance: SERTRALINE HYDROCHLORIDE
     Dosage: 2 DOSAGE FORM, BID (2 EVERY DAY,56 TABLET)
     Dates: start: 20160606
  40. HYDROCORTISONE [Concomitant]
     Active Substance: HYDROCORTISONE
     Dosage: 15 GRAM, BID (APPLY THINLY TWICE A DAY AS DIRECTED,15 GRAM)
  41. SCOPOLAMINE [Concomitant]
     Active Substance: SCOPOLAMINE
  42. SCOPOLAMINE [Concomitant]
     Active Substance: SCOPOLAMINE
  43. SCOPOLAMINE HYDROBROMIDE [Concomitant]
     Active Substance: SCOPOLAMINE HYDROBROMIDE
     Dosage: 1 DOSAGE FORM, BID (ONE TO BE TAKEN TWICE A  DAY)
     Dates: start: 20160606
  44. TRIMETHOPRIM [Concomitant]
     Active Substance: TRIMETHOPRIM
     Dosage: 1 DOSAGE FORM, BID (ONE TO BE TAKEN TWICE A DAY,6 TABLET)
     Dates: start: 20131024
  45. TRIMETHOPRIM [Concomitant]
     Active Substance: TRIMETHOPRIM
     Dosage: 1 DOSAGE FORM, BID (ONE TO BE TAKEN TWICE A DAY,6 TABLET)
     Dates: start: 20150105
  46. TRIMETHOPRIM [Concomitant]
     Active Substance: TRIMETHOPRIM
     Dosage: 1 DOSAGE FORM, BID (ONE TO BE TAKEN TWICE A DAY,6 TABLET)
     Dates: start: 20150320
  47. TRIMETHOPRIM [Concomitant]
     Active Substance: TRIMETHOPRIM
     Dosage: 1 DOSAGE FORM, BID (ONE TO BE TAKEN TWICE A DAY,6 TABLET)
     Dates: start: 20150713
  48. CEPHALEXIN [Concomitant]
     Active Substance: CEPHALEXIN
     Dosage: 1 DOSAGE FORM, BID (ONE TO BE TAKEN TWICE A DAY,14 CAPSULE)
     Dates: start: 20150107
  49. ALBUTEROL [Concomitant]
     Active Substance: ALBUTEROL
  50. ALBUTEROL [Concomitant]
     Active Substance: ALBUTEROL
  51. ACETAMINOPHEN [Concomitant]
     Active Substance: ACETAMINOPHEN
  52. Gentamicin;Hydrocortisone [Concomitant]
     Dosage: UNK, TID(TWO DROPS TO BE USED IN THE AFFECTED EAR(S) TDS A DAY 5/7,10 ML)
  53. Cuplex [Concomitant]
     Dosage: UNK, QD (APPLY THINLY ONCE A DAY)
     Dates: start: 20131024
  54. SCOPOLAMINE HYDROBROMIDE [Concomitant]
     Active Substance: SCOPOLAMINE HYDROBROMIDE
     Dosage: 1 DOSAGE FORM, QD (ONE TO BE TAKEN EACH DAY,28 TABLET)
     Dates: start: 20131018
  55. SERTRALINE [Concomitant]
     Active Substance: SERTRALINE HYDROCHLORIDE
     Dosage: 1 DOSAGE FORM, QD (1 DAILY, 28 TABLET)
     Dates: start: 20130128
  56. CITALOPRAM [Concomitant]
     Active Substance: CITALOPRAM
     Dosage: 1 DOSAGE FORM, QD (ONE TO BE TAKEN EACH DAY, 28 TABLET)
     Dates: start: 20120327
  57. CITALOPRAM [Concomitant]
     Active Substance: CITALOPRAM
     Dosage: 1 DOSAGE FORM, QD (ONE TO BE TAKEN EACH DAY,14 TABLET)
     Dates: start: 20120601
  58. CITALOPRAM [Concomitant]
     Active Substance: CITALOPRAM
     Dosage: 1 DOSAGE FORM, AM (ONE TO BE TAKEN EACH MORNING, 28 TABLET)
     Dates: start: 20121108
  59. POTASSIUM BICARBONATE\SODIUM ALGINATE [Concomitant]
     Active Substance: POTASSIUM BICARBONATE\SODIUM ALGINATE
     Dosage: UNK, QID (5-10 MLS QDS PRN)
     Dates: start: 20121029
  60. BECLOMETHASONE DIPROPIONATE [Concomitant]
     Active Substance: BECLOMETHASONE DIPROPIONATE
     Dosage: 2 DOSAGE FORM, BID (2 PUFFS TWICE A DAY,1 INHALER)
     Dates: start: 20121004
  61. Verrugon [Concomitant]
     Dosage: UNK, QD (APPLY OD,6 GRAM)
     Dates: start: 20120705
  62. NICOTINE [Concomitant]
     Active Substance: NICOTINE
     Dosage: 1 DOSAGE FORM, QD (1 DAILY, 14 PATCH)
     Dates: start: 20120402
  63. LACTULOSE [Concomitant]
     Active Substance: LACTULOSE
     Dosage: UNK, BID (10-15MLS TWICE A DAY WHEN NEEDED,500 ML)
     Dates: start: 20120123
  64. PREDNISOLONE [Concomitant]
     Active Substance: PREDNISOLONE
     Dosage: 6 DOSAGE FORM, QD (6 DAILY FOR 5 DAYS, 30 TABLET)
     Dates: start: 20101214
  65. PREDNISOLONE [Concomitant]
     Active Substance: PREDNISOLONE
     Dosage: 8 DOSAGE FORM, QD (8 DAILY FOR 5 DAYS, 40 TABLET)
     Dates: start: 20111220
  66. CITALOPRAM [Concomitant]
     Active Substance: CITALOPRAM
     Dosage: 1 DOSAGE FORM, QD (ONE TO BE TAKEN EACH DAY,28 TABLET)
     Dates: start: 20111202
  67. ACYCLOVIR [Concomitant]
     Active Substance: ACYCLOVIR

REACTIONS (8)
  - Colitis [Recovered/Resolved]
  - C-reactive protein increased [Recovered/Resolved]
  - Chest pain [Recovered/Resolved]
  - Abdominal pain [Recovered/Resolved]
  - Body temperature abnormal [Recovered/Resolved]
  - Cholecystitis [Recovered/Resolved]
  - Neoplasm malignant [Unknown]
  - Product dose omission issue [Unknown]

NARRATIVE: CASE EVENT DATE: 20250207
